FAERS Safety Report 8293768-8 (Version None)
Quarter: 2012Q2

REPORT INFORMATION
  Report Type: 
  Country: None (occurrence: None)
  Receive Date: 20120413
  Receipt Date: 20120404
  Transmission Date: 20120825
  Serious: Yes (Hospitalization, Other)
  Sender: FDA-Public Use
  Company Number: TPA2012A00923

PATIENT
  Age: 65 Year
  Sex: Male
  Weight: 99.7913 kg

DRUGS (7)
  1. DEXILANT [Suspect]
     Indication: GASTROOESOPHAGEAL REFLUX DISEASE
     Dosage: 60 MG, PER ORAL; 60 MG, PER ORAL
     Route: 048
     Dates: start: 20110624, end: 20120110
  2. DEXILANT [Suspect]
     Indication: GASTROOESOPHAGEAL REFLUX DISEASE
     Dosage: 60 MG, PER ORAL; 60 MG, PER ORAL
     Route: 048
     Dates: start: 20120217
  3. TRAMADOL HCL [Concomitant]
  4. LISINOPRIL [Concomitant]
  5. PEPCID [Concomitant]
  6. LIPITOR [Concomitant]
  7. ASPIRIN [Concomitant]

REACTIONS (4)
  - ARTERIAL OCCLUSIVE DISEASE [None]
  - DYSPNOEA [None]
  - THROMBOCYTOPENIA [None]
  - ASTHENIA [None]
